FAERS Safety Report 8485268-7 (Version None)
Quarter: 2012Q3

REPORT INFORMATION
  Report Type: 
  Country: None (occurrence: None)
  Receive Date: 20120703
  Receipt Date: 20120627
  Transmission Date: 20120928
  Serious: No
  Sender: FDA-Public Use
  Company Number: US-PFIZER INC-2012155657

PATIENT
  Sex: Male
  Weight: 81 kg

DRUGS (9)
  1. LYRICA [Suspect]
     Dosage: 200 MG, 2X/DAY
     Route: 048
  2. LYRICA [Suspect]
     Dosage: UNK
     Route: 048
     Dates: start: 20120622
  3. LYRICA [Suspect]
     Dosage: UNK
     Route: 048
  4. LYRICA [Suspect]
     Dosage: UNK
     Route: 048
     Dates: start: 20110101, end: 20120501
  5. CYMBALTA [Concomitant]
     Dosage: UNK
  6. LISINOPRIL [Concomitant]
     Indication: HYPERTENSION
     Dosage: UNK
  7. LYRICA [Suspect]
     Indication: FIBROMYALGIA
     Dosage: 200 MG, 2X/DAY
     Route: 048
     Dates: end: 20110501
  8. TRAMADOL [Concomitant]
     Dosage: UNK
  9. KLONOPIN [Concomitant]
     Dosage: UNK

REACTIONS (2)
  - WITHDRAWAL SYNDROME [None]
  - MALAISE [None]
